FAERS Safety Report 8917722 (Version 1)
Quarter: 2012Q4

REPORT INFORMATION
  Report Type: 
  Country: GB (occurrence: GB)
  Receive Date: 20121119
  Receipt Date: 20121119
  Transmission Date: 20130627
  Serious: Yes (Life-Threatening)
  Sender: FDA-Public Use
  Company Number: GB-ROCHE-1156656

PATIENT
  Age: 61 Year
  Sex: Male

DRUGS (11)
  1. RITUXIMAB [Suspect]
     Indication: NON-HODGKIN^S LYMPHOMA
     Route: 065
     Dates: start: 20111108
  2. CYCLOPHOSPHAMIDE [Concomitant]
     Route: 065
     Dates: start: 20111108, end: 20120124
  3. DOXORUBICIN [Concomitant]
     Route: 065
     Dates: start: 20111108
  4. FLUCONAZOLE [Concomitant]
  5. FOLIC ACID [Concomitant]
  6. LANSOPRAZOLE [Concomitant]
  7. ONCOVIN [Concomitant]
     Route: 065
     Dates: start: 20111108, end: 20120124
  8. PREDNISOLONE [Concomitant]
     Route: 065
     Dates: start: 20111108, end: 20120124
  9. SALMETEROL [Concomitant]
  10. TIOTROPIUM [Concomitant]
     Dosage: inhalation use
     Route: 065
  11. FLUTICASONE [Concomitant]

REACTIONS (1)
  - Pulmonary function test decreased [Unknown]
